FAERS Safety Report 10381890 (Version 5)
Quarter: 2014Q4

REPORT INFORMATION
  Report Type: Report from Study
  Country: KR (occurrence: KR)
  Receive Date: 20140813
  Receipt Date: 20141215
  Transmission Date: 20150528
  Serious: Yes (Death, Hospitalization, Other)
  Sender: FDA-Public Use
  Company Number: KR-GLAXOSMITHKLINE-B1023053A

PATIENT

DRUGS (8)
  1. TOPOTECAN HYDROCHLORIDE. [Suspect]
     Active Substance: TOPOTECAN HYDROCHLORIDE
     Indication: SMALL CELL LUNG CANCER
     Dosage: 4.04 MG, QD
     Route: 048
     Dates: start: 20140715, end: 20140719
  2. ERDOS [Concomitant]
     Indication: PRODUCTIVE COUGH
     Dosage: 300 MG, BID
     Route: 048
     Dates: start: 20131111, end: 20140726
  3. HALOPERIDOL. [Concomitant]
     Active Substance: HALOPERIDOL
     Indication: DELIRIUM
     Dosage: 2.5 MG, QD
     Route: 030
     Dates: start: 20140718, end: 20140718
  4. MAGMIL [Concomitant]
     Active Substance: MAGNESIUM HYDROXIDE
     Indication: PROPHYLAXIS
     Dosage: 1000 MG, BID
     Route: 048
     Dates: start: 20140609, end: 20140725
  5. ALBIS [Concomitant]
     Active Substance: BISMUTH SUBCITRATE\RANITIDINE HYDROCHLORIDE\SUCRALFATE
     Indication: PROPHYLAXIS
     Dosage: 1 UNK, BID
     Route: 048
     Dates: start: 20131111, end: 20140725
  6. MAGNESIA [Concomitant]
     Route: 048
     Dates: start: 20131121, end: 20140725
  7. LEVOTUSS [Concomitant]
     Active Substance: LEVODROPROPIZINE
     Indication: PRODUCTIVE COUGH
     Dosage: 60 MG, BID
     Route: 048
     Dates: start: 20131111, end: 20140725
  8. SEROQUEL [Concomitant]
     Active Substance: QUETIAPINE FUMARATE
     Indication: DELIRIUM
     Dosage: 25 MG, QD
     Route: 048
     Dates: start: 20140717, end: 20140717

REACTIONS (5)
  - Neutropenia [Not Recovered/Not Resolved]
  - Septic shock [Fatal]
  - Acidosis [Not Recovered/Not Resolved]
  - Blood creatinine increased [Not Recovered/Not Resolved]
  - Dyspnoea [Not Recovered/Not Resolved]

NARRATIVE: CASE EVENT DATE: 20140722
